FAERS Safety Report 22631186 (Version 1)
Quarter: 2023Q2

REPORT INFORMATION
  Report Type: Spontaneous
  Country: US (occurrence: US)
  Receive Date: 20230623
  Receipt Date: 20230623
  Transmission Date: 20230722
  Serious: Yes (Other)
  Sender: FDA-Public Use
  Company Number: US-STERISCIENCE B.V.-2023-ST-000210

PATIENT
  Sex: Female
  Weight: 2.34 kg

DRUGS (11)
  1. MIDAZOLAM [Suspect]
     Active Substance: MIDAZOLAM
     Indication: Vein of Galen aneurysmal malformation
     Dosage: UNK
  2. DOPAMINE [Suspect]
     Active Substance: DOPAMINE HYDROCHLORIDE
     Indication: Neonatal hypotension
     Dosage: UNK
     Route: 042
  3. DOPAMINE [Suspect]
     Active Substance: DOPAMINE HYDROCHLORIDE
     Indication: Vein of Galen aneurysmal malformation
  4. EPINEPHRINE [Suspect]
     Active Substance: EPINEPHRINE
     Indication: Vein of Galen aneurysmal malformation
     Dosage: UNK
  5. FUROSEMIDE [Suspect]
     Active Substance: FUROSEMIDE
     Indication: Vein of Galen aneurysmal malformation
     Dosage: UNK; INFUSION
     Route: 042
  6. LEVETIRACETAM [Suspect]
     Active Substance: LEVETIRACETAM
     Indication: Vein of Galen aneurysmal malformation
     Dosage: UNK
  7. MILRINONE [Suspect]
     Active Substance: MILRINONE
     Indication: Vein of Galen aneurysmal malformation
     Dosage: UNK; INFUSION
     Route: 042
  8. NITRIC OXIDE [Suspect]
     Active Substance: NITRIC OXIDE
     Indication: Vein of Galen aneurysmal malformation
     Dosage: UNK
  9. PHENOBARBITAL [Suspect]
     Active Substance: PHENOBARBITAL
     Indication: Vein of Galen aneurysmal malformation
     Dosage: UNK
  10. VASOPRESSIN [Suspect]
     Active Substance: VASOPRESSIN
     Indication: Vein of Galen aneurysmal malformation
     Dosage: UNK
  11. OXYGEN [Concomitant]
     Active Substance: OXYGEN
     Indication: Oxygen therapy
     Dosage: UNK

REACTIONS (1)
  - Drug ineffective for unapproved indication [Unknown]
